FAERS Safety Report 5873597-2 (Version None)
Quarter: 2008Q3

REPORT INFORMATION
  Report Type: 
  Country: None (occurrence: None)
  Receive Date: 20080908
  Receipt Date: 20080908
  Transmission Date: 20090109
  Serious: Yes (Other)
  Sender: FDA-Public Use
  Company Number: A0746275A

PATIENT
  Age: 43 Year
  Sex: Female

DRUGS (1)
  1. COMMIT [Suspect]
     Indication: SMOKING CESSATION THERAPY
     Dosage: 30LOZ PER DAY
     Route: 002
     Dates: start: 19950101

REACTIONS (3)
  - DEPENDENCE [None]
  - INTENTIONAL DRUG MISUSE [None]
  - OVERDOSE [None]
